FAERS Safety Report 25974547 (Version 3)
Quarter: 2025Q4

REPORT INFORMATION
  Report Type: Spontaneous
  Country: EU (occurrence: EU)
  Receive Date: 20251029
  Receipt Date: 20251229
  Transmission Date: 20260117
  Serious: Yes (Hospitalization, Other)
  Sender: BRISTOL-MYERS SQUIBB COMPANY
  Company Number: EU-BRISTOL-MYERS SQUIBB COMPANY-2025-144995

PATIENT
  Age: 55 Year
  Sex: Male

DRUGS (6)
  1. OPDIVO [Suspect]
     Active Substance: NIVOLUMAB
     Indication: Metastatic malignant melanoma
     Dosage: 1ST DOSE
  2. OPDIVO [Suspect]
     Active Substance: NIVOLUMAB
     Dosage: 2ND DOSE
  3. OPDIVO [Suspect]
     Active Substance: NIVOLUMAB
     Dosage: 3RD DOSE
  4. YERVOY [Suspect]
     Active Substance: IPILIMUMAB
     Indication: Metastatic malignant melanoma
     Dosage: 1ST DOSE
  5. YERVOY [Suspect]
     Active Substance: IPILIMUMAB
     Dosage: 2ND DOSE
  6. YERVOY [Suspect]
     Active Substance: IPILIMUMAB
     Dosage: 3RD DOSE

REACTIONS (4)
  - Hepatitis [Recovered/Resolved]
  - Blood creatine phosphokinase increased [Recovered/Resolved]
  - Haemophagocytic lymphohistiocytosis [Recovered/Resolved]
  - Somnolence [Unknown]

NARRATIVE: CASE EVENT DATE: 20250913
